FAERS Safety Report 4325711-8 (Version None)
Quarter: 2004Q1

REPORT INFORMATION
  Report Type: 
  Country: None (occurrence: None)
  Receive Date: 20040324
  Receipt Date: 20040305
  Transmission Date: 20041129
  Serious: Yes (Death, Hospitalization)
  Sender: FDA-Public Use
  Company Number: US_0402101104

PATIENT
  Age: 65 Year
  Sex: Male
  Weight: 109 kg

DRUGS (9)
  1. XIGRIS [Suspect]
     Indication: SEPSIS
     Dosage: 24 UG/KG/HR
     Dates: start: 20040131, end: 20040202
  2. PANCRELIPASE [Concomitant]
  3. CALCIUM ACETATE [Concomitant]
  4. METOCLOPRAMIDE [Concomitant]
  5. MORPHINE SULFATE [Concomitant]
  6. CEFTAZIDIME [Concomitant]
  7. FLUCONAZOLE [Concomitant]
  8. METRONIDAZOLE [Concomitant]
  9. VANCOMYCIN [Concomitant]

REACTIONS (4)
  - HAEMATOCRIT DECREASED [None]
  - HAEMOGLOBIN DECREASED [None]
  - HAEMORRHAGE [None]
  - INTERNATIONAL NORMALISED RATIO ABNORMAL [None]
